FAERS Safety Report 4559545-6 (Version None)
Quarter: 2005Q1

REPORT INFORMATION
  Report Type: 
  Country: None (occurrence: None)
  Receive Date: 20050124
  Receipt Date: 20050113
  Transmission Date: 20050727
  Serious: Yes (Other)
  Sender: FDA-Public Use
  Company Number: JP-GLAXOSMITHKLINE-B0365020A

PATIENT
  Age: 62 Year
  Sex: Male

DRUGS (9)
  1. ZANTAC [Suspect]
     Indication: UPPER GASTROINTESTINAL HAEMORRHAGE
     Dosage: 150MG TWICE PER DAY
     Route: 048
     Dates: start: 20041119, end: 20041125
  2. OLMETEC [Suspect]
     Indication: PROCEDURAL HYPERTENSION
     Dosage: 20MG PER DAY
     Route: 048
     Dates: start: 20041120, end: 20041125
  3. CALBLOCK [Suspect]
     Indication: PROCEDURAL HYPERTENSION
     Dosage: 16MG PER DAY
     Route: 048
     Dates: start: 20041119, end: 20041126
  4. GLUCOBAY [Concomitant]
     Indication: DIABETES MELLITUS
     Route: 048
     Dates: start: 20041115, end: 20041203
  5. LASIX [Concomitant]
     Indication: HYPERTENSION
     Dosage: 40MG PER DAY
     Route: 048
  6. PERSANTIN [Concomitant]
     Indication: EMBOLISM
     Dosage: 75MG TWICE PER DAY
     Route: 048
     Dates: start: 20041119
  7. MAGLAX [Concomitant]
     Indication: GASTROINTESTINAL DISORDER
     Dosage: 330MG PER DAY
     Route: 048
     Dates: start: 20041119
  8. WARFARIN SODIUM [Concomitant]
     Indication: EMBOLISM
     Dosage: 1MG PER DAY
     Route: 048
     Dates: start: 20041120
  9. RENIVACE [Concomitant]
     Indication: HYPERTENSION
     Dosage: 5MG PER DAY
     Route: 048
     Dates: start: 20041115, end: 20041118

REACTIONS (3)
  - ALANINE AMINOTRANSFERASE INCREASED [None]
  - ASPARTATE AMINOTRANSFERASE INCREASED [None]
  - LIVER FUNCTION TEST ABNORMAL [None]
